FAERS Safety Report 7530008-9 (Version None)
Quarter: 2011Q2

REPORT INFORMATION
  Report Type: 
  Country: None (occurrence: None)
  Receive Date: 20110607
  Receipt Date: 20110524
  Transmission Date: 20111010
  Serious: Yes (Other)
  Sender: FDA-Public Use
  Company Number: PHHY2011DE47139

PATIENT
  Sex: Female

DRUGS (1)
  1. ZADITEN [Suspect]

REACTIONS (2)
  - CYTOGENETIC ABNORMALITY [None]
  - SPINAL DISORDER [None]
